FAERS Safety Report 10479595 (Version 5)
Quarter: 2015Q1

REPORT INFORMATION
  Report Type: Report from Study
  Country: US (occurrence: US)
  Receive Date: 20140927
  Receipt Date: 20150102
  Transmission Date: 20150720
  Serious: Yes (Hospitalization)
  Sender: FDA-Public Use
  Company Number: US-009507513-1409USA011758

PATIENT
  Age: 61 Year
  Sex: Female
  Weight: 67.8 kg

DRUGS (7)
  1. RIBAVIRIN. [Suspect]
     Active Substance: RIBAVIRIN
     Indication: CHRONIC HEPATITIS C
     Dosage: 1 TABLET
     Route: 048
     Dates: start: 20140709, end: 20140709
  2. MK-5172A [Suspect]
     Active Substance: ELBASVIR\GRAZOPREVIR ANHYDROUS
     Indication: CHRONIC HEPATITIS C
     Dosage: 1 TABLET
     Route: 048
     Dates: start: 20140709, end: 20140709
  3. ALEVE [Concomitant]
     Active Substance: NAPROXEN SODIUM
     Indication: ARTHRALGIA
     Dosage: 440 MG, QD
     Route: 048
     Dates: start: 201404
  4. MK-5172A [Suspect]
     Active Substance: ELBASVIR\GRAZOPREVIR ANHYDROUS
     Dosage: 1 TABLET
     Route: 048
     Dates: start: 20140910, end: 20140910
  5. RIBAVIRIN. [Suspect]
     Active Substance: RIBAVIRIN
     Dosage: 1 TABLET
     Route: 048
     Dates: start: 20140910, end: 20140910
  6. HYDROCODONE [Suspect]
     Active Substance: HYDROCODONE
     Indication: ARTHRALGIA
     Dosage: TOTAL DAILY DOSE: 2 TABLET, PRN
     Route: 048
     Dates: start: 201406
  7. ALPRAZOLAM. [Concomitant]
     Active Substance: ALPRAZOLAM
     Indication: ANXIETY
     Dosage: 1 MG, TID
     Route: 048
     Dates: start: 20130101

REACTIONS (1)
  - Overdose [Recovered/Resolved]

NARRATIVE: CASE EVENT DATE: 20140914
